FAERS Safety Report 9255679 (Version 1)
Quarter: 2013Q2

REPORT INFORMATION
  Report Type: Spontaneous
  Country: US (occurrence: US)
  Receive Date: 20130425
  Receipt Date: 20130425
  Transmission Date: 20140414
  Serious: No
  Sender: FDA-Public Use
  Company Number: US-PFIZER INC-2013130048

PATIENT
  Sex: Female

DRUGS (2)
  1. OXYCODONE HYDROCHLORIDE [Suspect]
     Indication: SPINAL COLUMN STENOSIS
     Dosage: UNK
  2. OXYCODONE HYDROCHLORIDE [Suspect]
     Indication: HEADACHE

REACTIONS (2)
  - Off label use [Unknown]
  - Drug ineffective [Unknown]
